FAERS Safety Report 4473556-0 (Version None)
Quarter: 2004Q4

REPORT INFORMATION
  Report Type: 
  Country: None (occurrence: None)
  Receive Date: 20041013
  Receipt Date: 20041005
  Transmission Date: 20050328
  Serious: Yes (Life-Threatening, Hospitalization)
  Sender: FDA-Public Use
  Company Number: US-MERCK-0410USA00745

PATIENT
  Age: 41 Year
  Sex: Male

DRUGS (2)
  1. VIOXX [Suspect]
     Indication: POST PROCEDURAL PAIN
     Route: 048
     Dates: start: 20030101
  2. VIOXX [Suspect]
     Route: 048
     Dates: start: 20030101

REACTIONS (4)
  - FATIGUE [None]
  - HYPERHIDROSIS [None]
  - OVERDOSE [None]
  - TACHYCARDIA [None]
